FAERS Safety Report 10866957 (Version 1)
Quarter: 2015Q1

REPORT INFORMATION
  Report Type: Spontaneous
  Country: US (occurrence: US)
  Receive Date: 20150225
  Receipt Date: 20150225
  Transmission Date: 20150721
  Serious: Yes (Other)
  Sender: FDA-Public Use
  Company Number: US-009507513-1502USA005156

PATIENT
  Age: 71 Year
  Sex: Female
  Weight: 110 kg

DRUGS (2)
  1. ADVIL [Suspect]
     Active Substance: IBUPROFEN
     Indication: HEADACHE
     Dosage: UNK
     Dates: start: 1995, end: 201501
  2. ELAVIL [Suspect]
     Active Substance: AMITRIPTYLINE HYDROCHLORIDE
     Indication: DEPRESSION
     Dosage: UNK
     Route: 048
     Dates: start: 1977

REACTIONS (12)
  - Arthropathy [Recovered/Resolved]
  - Blister [Recovering/Resolving]
  - Gastrointestinal disorder [Recovered/Resolved]
  - Allergy test positive [Unknown]
  - Skin discolouration [Not Recovered/Not Resolved]
  - Rash [Recovering/Resolving]
  - Weight decreased [Recovered/Resolved]
  - Skin exfoliation [Recovering/Resolving]
  - Renal artery stent placement [Unknown]
  - Weight increased [Not Recovered/Not Resolved]
  - Skin disorder [Recovering/Resolving]
  - Pruritus [Recovering/Resolving]

NARRATIVE: CASE EVENT DATE: 1977
